FAERS Safety Report 10534781 (Version 2)
Quarter: 2015Q2

REPORT INFORMATION
  Report Type: Spontaneous
  Country: US (occurrence: US)
  Receive Date: 20141022
  Receipt Date: 20150623
  Transmission Date: 20150821
  Serious: Yes (Hospitalization, Other)
  Sender: FDA-Public Use
  Company Number: US-INCYTE CORPORATION-2014IN003111

PATIENT
  Sex: Male
  Weight: 88.44 kg

DRUGS (14)
  1. JAKAFI [Suspect]
     Active Substance: RUXOLITINIB
     Dosage: 5 MG, UNK
     Route: 048
  2. TAMSULOSIN [Concomitant]
     Active Substance: TAMSULOSIN
  3. PREDNISONE. [Concomitant]
     Active Substance: PREDNISONE
  4. HYDROCODONE [Concomitant]
     Active Substance: HYDROCODONE
  5. ATORVASTATIN [Concomitant]
     Active Substance: ATORVASTATIN
  6. JAKAFI [Suspect]
     Active Substance: RUXOLITINIB
     Dosage: 20 MG, UNK
     Route: 048
     Dates: end: 201505
  7. SYNTHROID [Concomitant]
     Active Substance: LEVOTHYROXINE SODIUM
  8. OMEPRAZOLE. [Concomitant]
     Active Substance: OMEPRAZOLE
  9. JAKAFI [Suspect]
     Active Substance: RUXOLITINIB
     Indication: MYELOFIBROSIS
     Dosage: 15 MG, QD
     Route: 048
  10. ASPIRIN. [Concomitant]
     Active Substance: ASPIRIN
  11. CITALOPRAM [Concomitant]
     Active Substance: CITALOPRAM HYDROBROMIDE
  12. ALLOPURINOL. [Concomitant]
     Active Substance: ALLOPURINOL
  13. ENALAPRIL [Concomitant]
     Active Substance: ENALAPRIL
  14. METOPROLOL [Concomitant]
     Active Substance: METOPROLOL

REACTIONS (4)
  - Pyrexia [Not Recovered/Not Resolved]
  - Pyrexia [Recovered/Resolved]
  - Night sweats [Recovered/Resolved]
  - Chills [Not Recovered/Not Resolved]
